FAERS Safety Report 5360512-3 (Version None)
Quarter: 2007Q2

REPORT INFORMATION
  Report Type: 
  Country: None (occurrence: None)
  Receive Date: 20070618
  Receipt Date: 20070608
  Transmission Date: 20071010
  Serious: Yes (Hospitalization)
  Sender: FDA-Public Use
  Company Number: B0474603A

PATIENT
  Age: 32 Year
  Sex: Male
  Weight: 70 kg

DRUGS (5)
  1. EPIVIR [Suspect]
     Indication: HIV INFECTION
     Route: 048
     Dates: start: 20061229
  2. NORVIR [Suspect]
     Indication: HIV INFECTION
     Route: 048
     Dates: start: 20061229
  3. VIDEX [Suspect]
     Indication: HIV INFECTION
     Route: 048
     Dates: start: 20061229
  4. DARUNAVIR [Suspect]
     Indication: HIV INFECTION
     Route: 048
     Dates: start: 20061229
  5. HIV TREATMENTS (UNSPECIFIED) [Suspect]
     Indication: HIV INFECTION
     Route: 048
     Dates: start: 20061229

REACTIONS (5)
  - BACK PAIN [None]
  - NEPHROLITHIASIS [None]
  - PYELOCALIECTASIS [None]
  - RENAL COLIC [None]
  - RENAL DISORDER [None]
